FAERS Safety Report 13625167 (Version 2)
Quarter: 2017Q2

REPORT INFORMATION
  Report Type: Spontaneous
  Country: US (occurrence: US)
  Receive Date: 20170608
  Receipt Date: 20170616
  Transmission Date: 20170830
  Serious: Yes (Life-Threatening, Hospitalization)
  Sender: FDA-Public Use
  Company Number: US-ACCORD-052372

PATIENT
  Age: 74 Year
  Sex: Female

DRUGS (11)
  1. GLUCOSE [Suspect]
     Active Substance: DEXTROSE
     Indication: HYPOGLYCAEMIA
     Route: 042
  2. POTASSIUM [Suspect]
     Active Substance: POTASSIUM
     Indication: PRODUCT USED FOR UNKNOWN INDICATION
  3. SPIRONOLACTONE. [Suspect]
     Active Substance: SPIRONOLACTONE
     Indication: PRODUCT USED FOR UNKNOWN INDICATION
  4. ACETYLSALICYLIC ACID [Concomitant]
     Active Substance: ASPIRIN
  5. CARVEDILOL/CARVEDILOL HYDROCHLODRIDE [Concomitant]
  6. BUMETANIDE. [Concomitant]
     Active Substance: BUMETANIDE
  7. PAROXETINE. [Concomitant]
     Active Substance: PAROXETINE
  8. INSULIN ISOPHANE BOVINE/INSULIN ISOPHANE PORCINE/ISOPHANE INSULIN [Concomitant]
     Dosage: 55 UNITS (U) IN THE MORNING AND 35U NIGHTLY
  9. METOLAZONE. [Concomitant]
     Active Substance: METOLAZONE
  10. INSULIN [Concomitant]
     Active Substance: INSULIN NOS
  11. SIMVASTATIN. [Concomitant]
     Active Substance: SIMVASTATIN

REACTIONS (2)
  - Hyperkalaemia [Unknown]
  - Cardiac arrest [Recovering/Resolving]
